FAERS Safety Report 4564936-3 (Version None)
Quarter: 2005Q1

REPORT INFORMATION
  Report Type: 
  Country: None (occurrence: None)
  Receive Date: 20050131
  Receipt Date: 20050118
  Transmission Date: 20050727
  Serious: Yes (Hospitalization)
  Sender: FDA-Public Use
  Company Number: JP-JNJFOC-20041206952

PATIENT
  Sex: Female

DRUGS (17)
  1. REMICADE [Suspect]
     Indication: RHEUMATOID ARTHRITIS
     Route: 042
  2. RHEUMATREX [Concomitant]
     Route: 049
  3. RHEUMATREX [Concomitant]
     Route: 049
  4. PSL [Concomitant]
     Route: 049
  5. PSL [Concomitant]
     Route: 049
  6. PSL [Concomitant]
     Route: 049
  7. PSL [Concomitant]
     Indication: RHEUMATOID ARTHRITIS
     Route: 049
  8. VOLTAREN [Concomitant]
     Indication: RHEUMATOID ARTHRITIS
  9. RINGEREAZE [Concomitant]
     Indication: RHEUMATOID ARTHRITIS
     Route: 049
  10. ONON [Concomitant]
     Route: 049
  11. ZADITEN [Concomitant]
     Route: 049
  12. FERRUM [Concomitant]
     Route: 049
  13. FASTIC [Concomitant]
     Route: 049
  14. MUCOSTA [Concomitant]
     Route: 049
  15. CYANOCOBALAMIN [Concomitant]
     Route: 049
  16. ONEALPHA [Concomitant]
     Route: 049
  17. THEOLONG [Concomitant]
     Route: 049

REACTIONS (2)
  - PLEURISY [None]
  - TUBERCULOSIS [None]
